FAERS Safety Report 8587947-X (Version None)
Quarter: 2012Q3

REPORT INFORMATION
  Report Type: 
  Country: None (occurrence: None)
  Receive Date: 20120813
  Receipt Date: 20120803
  Transmission Date: 20120928
  Serious: No
  Sender: FDA-Public Use
  Company Number: US-BIOGENIDEC-2011BI017502

PATIENT
  Age: 42 Year
  Sex: Male

DRUGS (5)
  1. AVONEX [Suspect]
     Route: 030
     Dates: start: 20090613, end: 20120618
  2. BETASERC [Concomitant]
  3. AVONEX [Suspect]
     Route: 030
     Dates: start: 20040102, end: 20040225
  4. STEROIDS [Concomitant]
  5. AVONEX [Suspect]
     Indication: MULTIPLE SCLEROSIS
     Route: 030

REACTIONS (9)
  - GLAUCOMA [None]
  - MULTIPLE SCLEROSIS RELAPSE [None]
  - NEURALGIA [None]
  - BLOOD GLUCOSE INCREASED [None]
  - DRUG EFFECT DECREASED [None]
  - OPTIC NEURITIS [None]
  - DEPRESSED MOOD [None]
  - CATARACT [None]
  - DRUG INEFFECTIVE [None]
